FAERS Safety Report 10265970 (Version 1)
Quarter: 2014Q2

REPORT INFORMATION
  Report Type: Spontaneous
  Country: US (occurrence: US)
  Receive Date: 20140627
  Receipt Date: 20140627
  Transmission Date: 20141212
  Serious: Yes (Other)
  Sender: FDA-Public Use
  Company Number: US-PFIZER INC-2014174276

PATIENT
  Age: 38 Year
  Sex: Male

DRUGS (3)
  1. GABAPENTIN [Suspect]
     Dosage: UP TO 2400 MG, UNK
  2. QUETIAPINE FUMARATE [Interacting]
     Dosage: UP TO 1000 MG , UNK
  3. BUPRENORPHINE W/NALOXONE [Interacting]
     Dosage: 8MG/2MG, UNK (TWOFILMS SUBLINGUALLY AS A SINGLE DAILY DOSE)
     Route: 060

REACTIONS (4)
  - Drug interaction [Unknown]
  - Drug abuse [Unknown]
  - Toxicity to various agents [Unknown]
  - Euphoric mood [Unknown]
